FAERS Safety Report 18140129 (Version 1)
Quarter: 2020Q3

REPORT INFORMATION
  Report Type: Spontaneous
  Country: US (occurrence: US)
  Receive Date: 20200812
  Receipt Date: 20200812
  Transmission Date: 20201103
  Serious: No
  Sender: FDA-Public Use
  Company Number: US-GLAXOSMITHKLINE-US2020AMR153193

PATIENT
  Sex: Female

DRUGS (1)
  1. ZEJULA [Suspect]
     Active Substance: NIRAPARIB
     Indication: OVARIAN CANCER
     Dosage: 100 MG
     Dates: start: 20200429

REACTIONS (6)
  - Muscle atrophy [Unknown]
  - Dyspnoea [Unknown]
  - Back pain [Unknown]
  - Myalgia [Unknown]
  - Nervous system disorder [Unknown]
  - Weight decreased [Unknown]
